FAERS Safety Report 12267272 (Version 1)
Quarter: 2016Q2

REPORT INFORMATION
  Report Type: Spontaneous
  Country: BR (occurrence: BR)
  Receive Date: 20160414
  Receipt Date: 20160414
  Transmission Date: 20160815
  Serious: Yes (Death)
  Sender: FDA-Public Use
  Company Number: PHHY2016BR049390

PATIENT
  Age: 93 Year
  Sex: Female

DRUGS (2)
  1. EXELON [Suspect]
     Active Substance: RIVASTIGMINE TARTRATE
     Indication: DEMENTIA ALZHEIMER^S TYPE
     Route: 065
  2. EXELON PATCH [Suspect]
     Active Substance: RIVASTIGMINE
     Indication: DEMENTIA ALZHEIMER^S TYPE
     Dosage: 4.6 MG (9 MG/ 5 CM2 PATCH) QD
     Route: 062

REACTIONS (7)
  - Eating disorder [Fatal]
  - Constipation [Fatal]
  - General physical health deterioration [Fatal]
  - Pulmonary oedema [Fatal]
  - Dementia Alzheimer^s type [Fatal]
  - Vomiting [Fatal]
  - Death [Fatal]

NARRATIVE: CASE EVENT DATE: 20151124
